FAERS Safety Report 20102463 (Version 4)
Quarter: 2022Q1

REPORT INFORMATION
  Report Type: Report from Study
  Country: US (occurrence: US)
  Receive Date: 20211123
  Receipt Date: 20220223
  Transmission Date: 20220424
  Serious: Yes (Other)
  Sender: FDA-Public Use
  Company Number: US-APELLIS-01032

PATIENT
  Age: 88 Year
  Sex: Female
  Weight: 44.815 kg

DRUGS (8)
  1. PEGCETACOPLAN [Suspect]
     Active Substance: PEGCETACOPLAN
     Indication: Dry age-related macular degeneration
     Route: 050
     Dates: start: 20210908, end: 20211008
  2. 1262333 (GLOBALC3Sep21): Aspirin [Concomitant]
     Indication: Cardiac disorder
     Route: 048
     Dates: start: 2012
  3. 1326813 (GLOBALC3Sep21): Levothyroxine [Concomitant]
     Indication: Hypothyroidism
     Dosage: 50 MCG
     Route: 048
     Dates: start: 2000
  4. 3756802 (GLOBALC3Sep21): Calcium with vitamin D [Concomitant]
     Indication: General physical condition
     Route: 048
     Dates: start: 1995
  5. 1329048 (GLOBALC3Sep21): Metoprolol [Concomitant]
     Indication: Hypertension
     Route: 048
     Dates: start: 20210607
  6. 3770885 (GLOBALC3Sep21): Preservision [Concomitant]
     Indication: General physical condition
     Route: 048
     Dates: start: 2018
  7. 1778212 (GLOBALC3Sep21): Pravastatin [Concomitant]
     Indication: Blood cholesterol
     Dosage: TIME INTERVAL: 0.33333333 WEEKS
     Route: 048
     Dates: start: 20191111
  8. 1324567 (GLOBALC3Sep21): Famotidine [Concomitant]
     Indication: Gastrooesophageal reflux disease
     Route: 048
     Dates: start: 20200107

REACTIONS (1)
  - Vitritis [Recovered/Resolved]

NARRATIVE: CASE EVENT DATE: 20211109
